FAERS Safety Report 23699232 (Version 5)
Quarter: 2025Q1

REPORT INFORMATION
  Report Type: Spontaneous
  Country: US (occurrence: US)
  Receive Date: 20240402
  Receipt Date: 20250122
  Transmission Date: 20250409
  Serious: No
  Sender: PFIZER
  Company Number: US-PFIZER INC-202101028167

PATIENT
  Age: 68 Year
  Sex: Female
  Weight: 90.975 kg

DRUGS (1)
  1. IBRANCE [Suspect]
     Active Substance: PALBOCICLIB
     Indication: Breast cancer female
     Route: 048

REACTIONS (8)
  - Feeling abnormal [Unknown]
  - Weight increased [Unknown]
  - Chills [Unknown]
  - Ear pain [Unknown]
  - Cough [Unknown]
  - Headache [Unknown]
  - Oropharyngeal pain [Unknown]
  - Fatigue [Unknown]
